FAERS Safety Report 21167473 (Version 4)
Quarter: 2022Q4

REPORT INFORMATION
  Report Type: Spontaneous
  Country: DE (occurrence: DE)
  Receive Date: 20220803
  Receipt Date: 20221013
  Transmission Date: 20230113
  Serious: Yes (Other)
  Sender: FDA-Public Use
  Company Number: DE-NOVARTISPH-NVSC2022DE174047

PATIENT
  Sex: Female

DRUGS (12)
  1. TOPOTECAN [Suspect]
     Active Substance: TOPOTECAN HYDROCHLORIDE
     Indication: Medulloblastoma
     Dosage: UNK, CYCLIC
     Route: 065
  2. TOPOTECAN [Suspect]
     Active Substance: TOPOTECAN HYDROCHLORIDE
     Dosage: UNK UNK, CYCLIC, (DOSE REDUCED)
     Route: 065
  3. FENOFIBRATE [Suspect]
     Active Substance: FENOFIBRATE
     Indication: Medulloblastoma
     Dosage: UNK, CYCLIC
     Route: 065
  4. FENOFIBRATE [Suspect]
     Active Substance: FENOFIBRATE
     Dosage: UNK UNK, CYCLIC, (REDUCED DOSE)
     Route: 065
  5. CELECOXIB [Suspect]
     Active Substance: CELECOXIB
     Indication: Medulloblastoma
     Dosage: UNK, CYCLIC
     Route: 065
  6. CELECOXIB [Suspect]
     Active Substance: CELECOXIB
     Dosage: UNK, CYCLIC, (DOSE REDUCED)
     Route: 065
  7. TEMOZOLOMIDE [Suspect]
     Active Substance: TEMOZOLOMIDE
     Indication: Medulloblastoma
     Dosage: UNK, CYCLIC
     Route: 065
  8. TEMOZOLOMIDE [Suspect]
     Active Substance: TEMOZOLOMIDE
     Dosage: UNK, CYCLIC, (REDUCED DOSE)
     Route: 065
  9. CYTARABINE [Suspect]
     Active Substance: CYTARABINE
     Indication: Medulloblastoma
     Dosage: UNK, CYCLIC
     Route: 016
  10. CYTARABINE [Suspect]
     Active Substance: CYTARABINE
     Dosage: UNK UNK, CYCLIC, (DOSE REDUCED)
     Route: 016
  11. THALIDOMIDE [Suspect]
     Active Substance: THALIDOMIDE
     Indication: Medulloblastoma
     Dosage: UNK, CYCLIC
     Route: 065
  12. BEVACIZUMAB [Suspect]
     Active Substance: BEVACIZUMAB
     Indication: Medulloblastoma
     Dosage: UNK, CYCLIC
     Route: 065

REACTIONS (4)
  - Leukopenia [Unknown]
  - Pancytopenia [Unknown]
  - Product use issue [Unknown]
  - Product use in unapproved indication [Unknown]
